FAERS Safety Report 4954958-2 (Version None)
Quarter: 2006Q1

REPORT INFORMATION
  Report Type: 
  Country: None (occurrence: None)
  Receive Date: 20060322
  Receipt Date: 20060309
  Transmission Date: 20060701
  Serious: Yes (Life-Threatening, Hospitalization)
  Sender: FDA-Public Use
  Company Number: 222911

PATIENT
  Age: 66 Year
  Sex: Female
  Weight: 66.9 kg

DRUGS (5)
  1. BEVACIZUMAB  (BEVACIZUMAB) PWDR + SOLVENT, INFUSION SOLN, 100 MG [Suspect]
     Indication: NON-SMALL CELL LUNG CANCER
     Dosage: 1020 MG, Q3W, INTRAVENOUS
     Route: 042
     Dates: start: 20051128
  2. BEVACIZUMAB  (BEVACIZUMAB) PWDR + SOLVENT, INFUSION SOLN, 100 MG [Suspect]
  3. BEVACIZUMAB  (BEVACIZUMAB) PWDR + SOLVENT, INFUSION SOLN, 100 MG [Suspect]
  4. ERLOTINIB (ERLOTINIB) TABLET, 150MG [Suspect]
     Indication: NON-SMALL CELL LUNG CANCER
     Dosage: 150 MG, QD
     Dates: start: 20051128
  5. ANTIBIOTICS NOS [Concomitant]

REACTIONS (2)
  - HAEMOPTYSIS [None]
  - PULMONARY HAEMORRHAGE [None]
